FAERS Safety Report 15008974 (Version 1)
Quarter: 2018Q2

REPORT INFORMATION
  Report Type: Spontaneous
  Country: FR (occurrence: FR)
  Receive Date: 20180614
  Receipt Date: 20180614
  Transmission Date: 20180711
  Serious: Yes (Other)
  Sender: FDA-Public Use
  Company Number: FR-MERCK KGAA-2049371

PATIENT
  Sex: Female

DRUGS (1)
  1. NOVOTHYROX [Suspect]
     Active Substance: LEVOTHYROXINE SODIUM
     Indication: PRODUCT USED FOR UNKNOWN INDICATION

REACTIONS (8)
  - Alopecia [None]
  - Fatigue [None]
  - Weight increased [None]
  - Dizziness [None]
  - Fall [None]
  - Ankle fracture [None]
  - Immobile [None]
  - Muscle spasms [None]

NARRATIVE: CASE EVENT DATE: 2017
